FAERS Safety Report 10359869 (Version 1)
Quarter: 2014Q3

REPORT INFORMATION
  Report Type: Spontaneous
  Country: BE (occurrence: BE)
  Receive Date: 20140804
  Receipt Date: 20140804
  Transmission Date: 20150326
  Serious: Yes (Hospitalization)
  Sender: FDA-Public Use
  Company Number: BE-SA-2014SA102502

PATIENT
  Age: 2 Month
  Sex: Male

DRUGS (4)
  1. CLAFORAN [Suspect]
     Active Substance: CEFOTAXIME SODIUM
     Indication: MASTOIDITIS
     Route: 042
  2. TRAFLOXAL [Concomitant]
     Indication: EAR INFECTION
  3. JUNIFEN [Concomitant]
     Indication: PYREXIA
     Route: 048
  4. CLAFORAN [Suspect]
     Active Substance: CEFOTAXIME SODIUM
     Indication: MASTOIDITIS
     Route: 042

REACTIONS (1)
  - Hepatotoxicity [Recovered/Resolved]

NARRATIVE: CASE EVENT DATE: 20140605
